FAERS Safety Report 21896312 (Version 1)
Quarter: 2023Q1

REPORT INFORMATION
  Report Type: Spontaneous
  Country: GB (occurrence: GB)
  Receive Date: 20230123
  Receipt Date: 20230123
  Transmission Date: 20230417
  Serious: No
  Sender: FDA-Public Use
  Company Number: GB-ALKEM LABORATORIES LIMITED-GB-ALKEM-2022-14385

PATIENT
  Age: 54 Year
  Sex: Female

DRUGS (2)
  1. FINGOLIMOD [Suspect]
     Active Substance: FINGOLIMOD
     Indication: Multiple sclerosis relapse
     Dosage: UNK
     Route: 065
     Dates: start: 2014
  2. FINGOLIMOD [Suspect]
     Active Substance: FINGOLIMOD
     Dosage: UNK (DECREASED)
     Route: 065

REACTIONS (1)
  - Skin papilloma [Recovering/Resolving]

NARRATIVE: CASE EVENT DATE: 20160101
